FAERS Safety Report 19170432 (Version 1)
Quarter: 2021Q2

REPORT INFORMATION
  Report Type: Spontaneous
  Country: US (occurrence: US)
  Receive Date: 20210422
  Receipt Date: 20210422
  Transmission Date: 20210717
  Serious: Yes (Other)
  Sender: FDA-Public Use
  Company Number: US-PURDUE PHARMA-USA-2021-0212985

PATIENT
  Age: 59 Year
  Sex: Female
  Weight: 72.56 kg

DRUGS (2)
  1. COLACE [Suspect]
     Active Substance: DOCUSATE SODIUM
     Indication: CONSTIPATION
     Dosage: 1 CAPSL, DAILY
     Route: 048
     Dates: start: 202012
  2. COLACE 2 IN 1 [Suspect]
     Active Substance: DOCUSATE SODIUM\SENNOSIDES
     Indication: PRODUCT USED FOR UNKNOWN INDICATION
     Dosage: UNK
     Route: 048

REACTIONS (6)
  - Intestinal obstruction [Not Recovered/Not Resolved]
  - Gastrointestinal motility disorder [Unknown]
  - Dysuria [Unknown]
  - Abdominal pain upper [Recovered/Resolved]
  - Expired product administered [Unknown]
  - Therapeutic product effect delayed [Unknown]

NARRATIVE: CASE EVENT DATE: 202012
